FAERS Safety Report 14675851 (Version 3)
Quarter: 2019Q1

REPORT INFORMATION
  Report Type: Spontaneous
  Country: US (occurrence: US)
  Receive Date: 20180323
  Receipt Date: 20190117
  Transmission Date: 20190417
  Serious: Yes (Life-Threatening, Hospitalization, Other)
  Sender: FDA-Public Use
  Company Number: US-JNJFOC-20180324094

PATIENT
  Sex: Female
  Weight: 63.5 kg

DRUGS (6)
  1. XARELTO [Suspect]
     Active Substance: RIVAROXABAN
     Indication: THROMBOSIS
     Route: 048
     Dates: start: 201407, end: 201508
  2. BOTOX [Concomitant]
     Active Substance: ONABOTULINUMTOXINA
     Indication: NERVE INJURY
     Route: 042
  3. MAGNESIUM [Concomitant]
     Active Substance: MAGNESIUM
     Indication: MIGRAINE
     Route: 042
  4. BOTOX [Concomitant]
     Active Substance: ONABOTULINUMTOXINA
     Indication: MIGRAINE
     Route: 042
  5. XARELTO [Suspect]
     Active Substance: RIVAROXABAN
     Indication: THROMBOSIS
     Route: 048
     Dates: start: 201508
  6. MAGNESIUM [Concomitant]
     Active Substance: MAGNESIUM
     Indication: NERVE INJURY
     Route: 042

REACTIONS (12)
  - Polymenorrhoea [Unknown]
  - Off label use [Unknown]
  - Coma [Recovered/Resolved]
  - Acute kidney injury [Recovered/Resolved]
  - Venous thrombosis [Unknown]
  - Menorrhagia [Not Recovered/Not Resolved]
  - Memory impairment [Recovering/Resolving]
  - Inappropriate schedule of product administration [Unknown]
  - Underdose [Unknown]
  - Product packaging issue [Unknown]
  - Thoracic outlet syndrome [Not Recovered/Not Resolved]
  - Haematoma [Recovered/Resolved]

NARRATIVE: CASE EVENT DATE: 2014
